FAERS Safety Report 6035362-5 (Version None)
Quarter: 2009Q1

REPORT INFORMATION
  Report Type: 
  Country: None (occurrence: None)
  Receive Date: 20090109
  Receipt Date: 20090109
  Transmission Date: 20090719
  Serious: Yes (Hospitalization)
  Sender: FDA-Public Use
  Company Number: None

PATIENT
  Sex: Female
  Weight: 54 kg

DRUGS (29)
  1. TYGACIL [Suspect]
     Indication: PNEUMONIA
     Dosage: 100 MG ONE TIME ONLY IV; 50 MG EVERY 12 HOURS IV
     Route: 042
     Dates: start: 20081119, end: 20081119
  2. TYGACIL [Suspect]
     Indication: PNEUMONITIS
     Dosage: 100 MG ONE TIME ONLY IV; 50 MG EVERY 12 HOURS IV
     Route: 042
     Dates: start: 20081119, end: 20081119
  3. TYGACIL [Suspect]
     Indication: PNEUMONIA
     Dosage: 100 MG ONE TIME ONLY IV; 50 MG EVERY 12 HOURS IV
     Route: 042
     Dates: start: 20081120, end: 20081130
  4. TYGACIL [Suspect]
     Indication: PNEUMONITIS
     Dosage: 100 MG ONE TIME ONLY IV; 50 MG EVERY 12 HOURS IV
     Route: 042
     Dates: start: 20081120, end: 20081130
  5. APAP TAB [Concomitant]
  6. ALBUTEROL [Concomitant]
  7. AMIODARONE HCL [Concomitant]
  8. AMLODIPINE BESYLATE [Concomitant]
  9. BENAZEPRIL HYDROCHLORIDE [Concomitant]
  10. CLONIDINE [Concomitant]
  11. DILTIAZEM [Concomitant]
  12. DIGOXIN [Concomitant]
  13. DORIPENEM [Concomitant]
  14. ENOXAPARIN SODIUM [Concomitant]
  15. FUROSEMIDE [Concomitant]
  16. HYDRALAZINE HCL [Concomitant]
  17. HYDROMORPHONE HCL [Concomitant]
  18. REGULAR INSULIN [Concomitant]
  19. IPRATROPIUM BROMIDE [Concomitant]
  20. LEVALBUTEROL HCL [Concomitant]
  21. LEVOFLOXACIN [Concomitant]
  22. LISINOPRIL [Concomitant]
  23. LORAZEPAM [Concomitant]
  24. METHYLPREDNISOLONE 16MG TAB [Concomitant]
  25. METOPROLOL [Concomitant]
  26. MORPHINE [Concomitant]
  27. PANTOPRAZOLE SODIUM [Concomitant]
  28. VANCOMYCIN HYDROCHLORIDE [Concomitant]
  29. WARFARIN [Concomitant]

REACTIONS (2)
  - NO THERAPEUTIC RESPONSE [None]
  - THROMBOCYTOPENIA [None]
